FAERS Safety Report 24044985 (Version 2)
Quarter: 2024Q3

REPORT INFORMATION
  Report Type: Spontaneous
  Country: US (occurrence: None)
  Receive Date: 20240703
  Receipt Date: 20240829
  Transmission Date: 20241017
  Serious: Yes (Hospitalization)
  Sender: ASTRAZENECA
  Company Number: 2024A146941

PATIENT
  Age: 29044 Day
  Sex: Female

DRUGS (1)
  1. TEZSPIRE [Suspect]
     Active Substance: TEZEPELUMAB-EKKO
     Dates: start: 20240501

REACTIONS (7)
  - Cardiac failure congestive [Unknown]
  - Lung disorder [Unknown]
  - Renal disorder [Unknown]
  - Pneumonia [Unknown]
  - Bacterial abdominal infection [Unknown]
  - Product dose omission issue [Unknown]
  - Device leakage [Unknown]

NARRATIVE: CASE EVENT DATE: 20240625
